FAERS Safety Report 5854234-X (Version None)
Quarter: 2008Q3

REPORT INFORMATION
  Report Type: 
  Country: None (occurrence: None)
  Receive Date: 20080822
  Receipt Date: 20080818
  Transmission Date: 20090109
  Serious: Yes (Hospitalization)
  Sender: FDA-Public Use
  Company Number: PHHY2008FR18651

PATIENT
  Sex: Male

DRUGS (7)
  1. LESCOL [Suspect]
     Dosage: 20 MG, QD
     Route: 048
  2. FRAXIPARINE [Suspect]
     Indication: DIALYSIS
     Dosage: 3800 IU, TIW
  3. LASIX [Suspect]
     Dosage: 500 MG, QD
     Route: 048
  4. SEROPRAM [Suspect]
     Dosage: 20 MG, QD
     Route: 048
  5. ASPIRIN [Suspect]
     Dosage: 160 MG, QD
     Route: 048
  6. SELOKEN [Suspect]
     Dosage: 100 MG, QD
     Route: 048
  7. MOPRAL [Suspect]
     Dosage: 10 MG, QD
     Route: 048

REACTIONS (3)
  - ABDOMINAL PAIN [None]
  - HYPERTENSION [None]
  - INTRAVASCULAR HAEMOLYSIS [None]
